FAERS Safety Report 13550791 (Version 2)
Quarter: 2017Q2

REPORT INFORMATION
  Report Type: Spontaneous
  Country: US (occurrence: US)
  Receive Date: 20170516
  Receipt Date: 20170525
  Transmission Date: 20170830
  Serious: No
  Sender: FDA-Public Use
  Company Number: US-BAYER-2017-092406

PATIENT
  Age: 3 Year
  Sex: Male

DRUGS (2)
  1. CLARITIN [Suspect]
     Active Substance: LORATADINE
     Indication: HYPERSENSITIVITY
     Dosage: 1 DF, QD
     Route: 048
  2. CLARITIN [Suspect]
     Active Substance: LORATADINE
     Indication: VIRAL UPPER RESPIRATORY TRACT INFECTION

REACTIONS (3)
  - Product use complaint [None]
  - Pain [None]
  - Incorrect drug administration duration [Unknown]
